FAERS Safety Report 19182200 (Version 1)
Quarter: 2021Q2

REPORT INFORMATION
  Report Type: Spontaneous
  Country: NL (occurrence: NL)
  Receive Date: 20210427
  Receipt Date: 20210427
  Transmission Date: 20210717
  Serious: Yes (Hospitalization, Other)
  Sender: FDA-Public Use
  Company Number: NL-AUROBINDO-AUR-APL-2021-016800

PATIENT
  Sex: Female
  Weight: 62 kg

DRUGS (1)
  1. SIMVASTATIN FILM?COATED TABLETS 20MG [Suspect]
     Active Substance: SIMVASTATIN
     Indication: HYPERCHOLESTEROLAEMIA
     Dosage: 20 MILLIGRAM, ONCE A DAY
     Route: 065
     Dates: start: 2013

REACTIONS (2)
  - Pancreatitis acute [Recovered/Resolved]
  - Accidental overdose [Recovered/Resolved]
